FAERS Safety Report 13155802 (Version 1)
Quarter: 2017Q1

REPORT INFORMATION
  Report Type: Spontaneous
  Country: US (occurrence: US)
  Receive Date: 20170126
  Receipt Date: 20170126
  Transmission Date: 20170428
  Serious: Yes (Other)
  Sender: FDA-Public Use
  Company Number: US-ROCHE-1203774

PATIENT
  Age: 6 Year
  Sex: Male
  Weight: 20 kg

DRUGS (4)
  1. DIAZEPAM. [Suspect]
     Active Substance: DIAZEPAM
     Indication: SEIZURE
     Route: 042
  2. LORAZEPAM. [Suspect]
     Active Substance: LORAZEPAM
     Indication: SEIZURE
     Dosage: 1 MG 4 TIMES SEPARATED BY 1 MINUTE
     Route: 042
  3. ETOMIDATE. [Concomitant]
     Active Substance: ETOMIDATE
     Dosage: 3 MG 2 TIMES SEPARATED BY 1 MINUTE
     Route: 042
  4. PROPOFOL. [Concomitant]
     Active Substance: PROPOFOL
     Dosage: 10 MG 2 TIMES SEPARATED BY 3 MINUTES
     Route: 042

REACTIONS (1)
  - Drug ineffective [Unknown]
